FAERS Safety Report 14819026 (Version 1)
Quarter: 2020Q3

REPORT INFORMATION
  Report Type: Spontaneous
  Country: ES (occurrence: ES)
  Receive Date: 20180427
  Receipt Date: 20180427
  Transmission Date: 20201105
  Serious: Yes (Other)
  Sender: FDA-Public Use
  Company Number: ES-ALKEM LABORATORIES LIMITED-ES-ALKEM-2018-02606

PATIENT
  Age: 51 Year
  Sex: Male

DRUGS (4)
  1. AMIKACIN. [Suspect]
     Active Substance: AMIKACIN
     Indication: NOCARDIOSIS
     Dosage: 1000 MG, BID
     Route: 065
  2. AMIKACIN. [Suspect]
     Active Substance: AMIKACIN
     Indication: BRAIN ABSCESS
  3. LINEZOLID. [Suspect]
     Active Substance: LINEZOLID
     Indication: NOCARDIOSIS
  4. LINEZOLID. [Suspect]
     Active Substance: LINEZOLID
     Indication: BRAIN ABSCESS
     Dosage: 600 MG, BID
     Route: 065

REACTIONS (1)
  - Ototoxicity [Unknown]
